FAERS Safety Report 7653156-1 (Version None)
Quarter: 2011Q3

REPORT INFORMATION
  Report Type: 
  Country: None (occurrence: None)
  Receive Date: 20110803
  Receipt Date: 20110722
  Transmission Date: 20111222
  Serious: Yes (Other)
  Sender: FDA-Public Use
  Company Number: JP-NOVOPROD-329719

PATIENT

DRUGS (11)
  1. VICTOZA [Suspect]
     Dosage: 0.6 MG, QD
     Route: 058
     Dates: start: 20110423
  2. ZETIA [Concomitant]
     Dosage: 10 MG, QD
     Route: 048
     Dates: start: 20110111
  3. REZALTAS COMBINATION [Concomitant]
     Dosage: 1 TAB, QD
     Route: 048
     Dates: start: 20110111
  4. VICTOZA [Suspect]
     Indication: TYPE 2 DIABETES MELLITUS
     Dosage: 0.3 MG, QD
     Route: 058
     Dates: start: 20110412
  5. VICTOZA [Suspect]
     Dosage: 0.6 MG, QD
     Route: 058
     Dates: start: 20110604
  6. ADALAT [Concomitant]
     Dosage: 60 MG, QD
     Route: 048
     Dates: start: 20110111
  7. ALLOZYM [Concomitant]
     Dosage: 100 MG, QD
     Route: 048
     Dates: start: 20110111
  8. VICTOZA [Suspect]
     Dosage: 0.9 MG, QD
     Route: 058
     Dates: start: 20110601
  9. FUROSEMIDE [Concomitant]
     Dosage: 80 MG, QD
     Route: 048
     Dates: start: 20110111
  10. TORSEMIDE [Concomitant]
     Dosage: 8 MG, QD
     Route: 048
     Dates: start: 20110111
  11. CARVEDILOL [Concomitant]
     Dosage: 5 MG, QD
     Route: 048
     Dates: start: 20110111

REACTIONS (2)
  - HYPOGLYCAEMIC UNCONSCIOUSNESS [None]
  - BLOOD PRESSURE DECREASED [None]
